FAERS Safety Report 12993873 (Version 3)
Quarter: 2017Q2

REPORT INFORMATION
  Report Type: Spontaneous
  Country: BR (occurrence: BR)
  Receive Date: 20161202
  Receipt Date: 20170503
  Transmission Date: 20170830
  Serious: Yes (Other)
  Sender: FDA-Public Use
  Company Number: BR-PFIZER INC-2016551653

PATIENT
  Age: 53 Year
  Sex: Female

DRUGS (3)
  1. GEODON [Suspect]
     Active Substance: ZIPRASIDONE HYDROCHLORIDE\ZIPRASIDONE MESYLATE
     Indication: OBSESSIVE-COMPULSIVE DISORDER
     Dosage: UNK, 2X/DAY
     Route: 048
     Dates: start: 2010, end: 201611
  2. FRONTAL [Concomitant]
     Active Substance: ALPRAZOLAM
     Indication: ANXIETY
     Dosage: 2 MG, 3X/DAY
     Route: 048
     Dates: start: 2015
  3. PROZAC [Concomitant]
     Active Substance: FLUOXETINE HYDROCHLORIDE
     Indication: OBSESSIVE-COMPULSIVE DISORDER
     Dosage: 60 MG, DAILY
     Route: 048

REACTIONS (11)
  - Sleep disorder [Unknown]
  - Anxiety [Not Recovered/Not Resolved]
  - Feeling abnormal [Not Recovered/Not Resolved]
  - Headache [Not Recovered/Not Resolved]
  - Hypertension [Unknown]
  - Panic disorder [Not Recovered/Not Resolved]
  - Dependence [Unknown]
  - Fatigue [Unknown]
  - Diabetes mellitus [Unknown]
  - Insomnia [Unknown]
  - Disease recurrence [Not Recovered/Not Resolved]

NARRATIVE: CASE EVENT DATE: 2013
